FAERS Safety Report 5032348-4 (Version None)
Quarter: 2006Q2

REPORT INFORMATION
  Report Type: 
  Country: None (occurrence: None)
  Receive Date: 20060621
  Receipt Date: 20060621
  Transmission Date: 20061013
  Serious: Yes (Life-Threatening)
  Sender: FDA-Public Use
  Company Number: None

PATIENT
  Age: 70 Year
  Sex: Female
  Weight: 95 kg

DRUGS (11)
  1. EZETIMIBE 10 MG MERK [Suspect]
     Indication: BLOOD CHOLESTEROL INCREASED
     Dosage: 10 MG DAILY PO
     Route: 048
  2. LANSOPRAZOLE [Concomitant]
  3. QUINAPRIL [Concomitant]
  4. PROTONIX [Concomitant]
  5. KADIAN [Concomitant]
  6. LEVOTHYROXINE SODIUM [Concomitant]
  7. FUROSEMIDE [Concomitant]
  8. GABAPENTIN [Concomitant]
  9. DOXEPIN [Concomitant]
  10. QININE [Concomitant]
  11. NABUMETONE [Concomitant]

REACTIONS (2)
  - ASTHENIA [None]
  - RHABDOMYOLYSIS [None]
